FAERS Safety Report 7870455-9 (Version None)
Quarter: 2011Q4

REPORT INFORMATION
  Report Type: 
  Country: None (occurrence: None)
  Receive Date: 20111029
  Receipt Date: 20110310
  Transmission Date: 20120403
  Serious: No
  Sender: FDA-Public Use
  Company Number: US-AMGEN-USASP2011013495

PATIENT
  Age: 77 Year
  Sex: Female
  Weight: 54.422 kg

DRUGS (12)
  1. CAL-MAG                            /01623301/ [Concomitant]
     Dosage: UNK
  2. PRAVACHOL [Concomitant]
     Dosage: 10 MG, UNK
  3. PAXIL [Concomitant]
     Dosage: UNK
  4. COUMADIN [Concomitant]
     Dosage: 1 MG, UNK
  5. TOPROL-XL [Concomitant]
     Dosage: 25 MG, UNK
  6. PRILOSEC [Concomitant]
     Dosage: 10 MG, UNK
  7. ENBREL [Suspect]
     Indication: PRODUCT USED FOR UNKNOWN INDICATION
     Dosage: 25 MG, 2 TIMES/WK
     Route: 058
  8. CENTRUM                            /00554501/ [Concomitant]
     Dosage: UNK
  9. PREDNISONE [Concomitant]
     Dosage: 1 MG, UNK
  10. LOTREL [Concomitant]
     Dosage: 10 MG, UNK
  11. CALCIUM +D                         /00188401/ [Concomitant]
  12. AMARYL [Concomitant]
     Dosage: 1 MG, UNK

REACTIONS (1)
  - RHINITIS [None]
